FAERS Safety Report 11571639 (Version 1)
Quarter: 2015Q3

REPORT INFORMATION
  Report Type: Spontaneous
  Country: US (occurrence: US)
  Receive Date: 20150916
  Receipt Date: 20150916
  Transmission Date: 20151125
  Serious: No
  Sender: FDA-Public Use
  Company Number: US-ELI_LILLY_AND_COMPANY-US200909006835

PATIENT
  Age: 63 Year
  Sex: Female

DRUGS (8)
  1. HERBAL NOS [Concomitant]
     Active Substance: HERBALS
  2. FORTEO [Suspect]
     Active Substance: TERIPARATIDE
     Dates: start: 200903
  3. PREMPRO [Concomitant]
     Active Substance: ESTROGENS, CONJUGATED\MEDROXYPROGESTERONE ACETATE
  4. VITAMIN D [Concomitant]
     Active Substance: CHOLECALCIFEROL
     Dosage: 2200 IU, DAILY (1/D)
  5. PROTONIX [Concomitant]
     Active Substance: PANTOPRAZOLE SODIUM
  6. LEXAPRO [Concomitant]
     Active Substance: ESCITALOPRAM OXALATE
  7. XANAX [Concomitant]
     Active Substance: ALPRAZOLAM
     Dosage: UNK, AS NEEDED
  8. FUROSET [Concomitant]
     Dosage: UNK, AS NEEDED

REACTIONS (1)
  - Vitamin D decreased [Unknown]

NARRATIVE: CASE EVENT DATE: 200909
